FAERS Safety Report 6529939-8 (Version None)
Quarter: 2010Q1

REPORT INFORMATION
  Report Type: 
  Country: None (occurrence: None)
  Receive Date: 20100107
  Receipt Date: 20091228
  Transmission Date: 20100710
  Serious: Yes (Other)
  Sender: FDA-Public Use
  Company Number: US-BRISTOL-MYERS SQUIBB COMPANY-14922728

PATIENT
  Age: 6 Year
  Sex: Male

DRUGS (10)
  1. CYCLOPHOSPHAMIDE [Suspect]
     Indication: RHABDOMYOSARCOMA
  2. CISPLATIN [Suspect]
     Indication: RHABDOMYOSARCOMA
  3. ETOPOSIDE [Suspect]
     Indication: RHABDOMYOSARCOMA
  4. DOXORUBICIN HCL [Suspect]
     Indication: RHABDOMYOSARCOMA
  5. HYDROCORTISONE [Suspect]
     Indication: RHABDOMYOSARCOMA
     Dosage: 30MG/M2 TIMES 3
     Route: 037
  6. METHOTREXATE [Suspect]
     Indication: RHABDOMYOSARCOMA
     Dosage: 15MG/M2 TIMES 3
     Route: 037
  7. CYTOSINE ARABINOSIDE [Suspect]
     Indication: RHABDOMYOSARCOMA
     Route: 037
  8. VINCRISTINE [Suspect]
     Indication: RHABDOMYOSARCOMA
  9. ACTINOMYCIN D [Suspect]
     Indication: RHABDOMYOSARCOMA
  10. RADIATION THERAPY [Suspect]
     Indication: RHABDOMYOSARCOMA

REACTIONS (1)
  - MYELITIS TRANSVERSE [None]
